FAERS Safety Report 10241451 (Version 1)
Quarter: 2014Q1

REPORT INFORMATION
  Report Type: Spontaneous
  Country: US (occurrence: None)
  Receive Date: 20140306
  Receipt Date: 20140306
  Transmission Date: 20141002
  Serious: Yes (Hospitalization)
  Sender: FDA-Public Use
  Company Number: 163-21880-13110754

PATIENT
  Age: 53 Year
  Sex: Female

DRUGS (11)
  1. REVLIMID (LENALIDOMIDE) (25 MILLIGRAM, CAPSULES) [Suspect]
     Indication: PLASMA CELL MYELOMA
     Route: 048
     Dates: start: 20130206
  2. KLONOPIN (CLONAZEPAM) (TABLETS) [Concomitant]
  3. CENTRUM SILVER (CENTRUM SILVER) (TABLETS) [Concomitant]
  4. CALTRATE + D (LEKOVIT CA) (TABLETS) [Concomitant]
  5. SINGULAIR (MONTELUKAST SODIUM) (UNKNOWN) [Concomitant]
  6. PANTOPRAZOLE SODIUM (PANTOPRAZOLE SODIUM) (UNKNOWN) [Concomitant]
  7. ZOLOFT (SERTRALINE HYDROCHLORIDE) (TABLETS) [Concomitant]
  8. MORPHINE SULFATE (MORPHINE SULFATE) (UNKNOWN) [Concomitant]
  9. DEXAMETHASONE (DEXAMETHASONE) (UNKNOWN) [Concomitant]
  10. ZYRTEC (CETIRIZINE HYDROCHLORIDE) (CHEWABLE TABLET) [Concomitant]
  11. ZOMETA (ZOLEDRONIC ACID) (INJECTION) [Concomitant]

REACTIONS (3)
  - Infection [None]
  - Neutropenia [None]
  - Upper respiratory tract infection [None]
